FAERS Safety Report 25683084 (Version 1)
Quarter: 2025Q3

REPORT INFORMATION
  Report Type: Spontaneous
  Country: US (occurrence: US)
  Receive Date: 20250814
  Receipt Date: 20250814
  Transmission Date: 20251020
  Serious: Yes (Other)
  Sender: UCB
  Company Number: US-UCBSA-2025049552

PATIENT
  Age: 21 Year
  Sex: Male

DRUGS (12)
  1. VIMPAT [Suspect]
     Active Substance: LACOSAMIDE
     Indication: Epilepsy
  2. VIMPAT [Suspect]
     Active Substance: LACOSAMIDE
     Dosage: 100 MILLIGRAM, 2X/DAY (BID)
     Route: 048
     Dates: start: 20250701
  3. KEPPRA [Suspect]
     Active Substance: LEVETIRACETAM
     Indication: Epilepsy
     Route: 048
     Dates: start: 20241028
  4. KEPPRA [Suspect]
     Active Substance: LEVETIRACETAM
     Route: 048
     Dates: start: 20241028
  5. OXCARBAZEPINE [Concomitant]
     Active Substance: OXCARBAZEPINE
     Indication: Product used for unknown indication
  6. OXCARBAZEPINE [Concomitant]
     Active Substance: OXCARBAZEPINE
     Dosage: 1200 MILLIGRAM, 2X/DAY (BID)
     Route: 048
     Dates: start: 20250701, end: 20250716
  7. CLONAZEPAM [Concomitant]
     Active Substance: CLONAZEPAM
     Indication: Seizure
     Route: 048
  8. FISH OIL [Concomitant]
     Active Substance: FISH OIL
     Indication: Product used for unknown indication
     Route: 048
  9. VITAMINS NOS [Concomitant]
     Active Substance: VITAMINS
     Indication: Product used for unknown indication
     Dosage: UNK, ONCE DAILY (QD)
     Route: 048
  10. VITAMIN B COMPLEX NOS [Concomitant]
     Active Substance: CYANOCOBALAMIN\PYRIDOXINE HYDROCHLORIDE\RIBOFLAVIN\SODIUM PANTOTHENATE\THIAMINE HYDROCHLORIDE\VITAMI
     Indication: Product used for unknown indication
     Dosage: UNK, ONCE DAILY (QD)
     Route: 048
     Dates: end: 20250704
  11. CALCIUM;MAGNESIUM;PHOSPHORUS;VITAMIN D NOS;ZINC [Concomitant]
     Indication: Product used for unknown indication
  12. VITAMIN D3 [Concomitant]
     Active Substance: CHOLECALCIFEROL
     Indication: Product used for unknown indication

REACTIONS (8)
  - Seizure [Recovering/Resolving]
  - Anxiety [Unknown]
  - Insomnia [Unknown]
  - Stress [Unknown]
  - Amnestic disorder [Unknown]
  - Product dose omission issue [Unknown]
  - Overdose [Unknown]
  - Product use issue [Unknown]

NARRATIVE: CASE EVENT DATE: 20250302
